FAERS Safety Report 5214432-5 (Version None)
Quarter: 2007Q1

REPORT INFORMATION
  Report Type: 
  Country: None (occurrence: None)
  Receive Date: 20070116
  Receipt Date: 20070108
  Transmission Date: 20070707
  Serious: Yes (Death, Hospitalization)
  Sender: FDA-Public Use
  Company Number: 236367K06USA

PATIENT
  Age: 72 Year
  Sex: Male
  Weight: 77.1115 kg

DRUGS (1)
  1. REBIF [Suspect]
     Indication: MULTIPLE SCLEROSIS
     Dosage: 44 MCG, 3 IN 1 WEEKS, SUBCUTANEOUS
     Route: 058
     Dates: start: 20020323, end: 20051117

REACTIONS (2)
  - DECREASED ACTIVITY [None]
  - MYOCARDIAL INFARCTION [None]
